FAERS Safety Report 9835326 (Version 1)
Quarter: 2014Q1

REPORT INFORMATION
  Report Type: Spontaneous
  Country: US (occurrence: US)
  Receive Date: 20140122
  Receipt Date: 20140122
  Transmission Date: 20141002
  Serious: No
  Sender: FDA-Public Use
  Company Number: US-BRISTOL-MYERS SQUIBB COMPANY-19930098

PATIENT
  Age: 87 Year
  Sex: Male
  Weight: 58.96 kg

DRUGS (6)
  1. ELIQUIS [Suspect]
     Dates: start: 20131102
  2. MULTAQ [Concomitant]
     Dates: start: 20131102
  3. TRAMADOL [Concomitant]
  4. FINASTERIDE [Concomitant]
  5. LISINOPRIL [Concomitant]
  6. SIMVASTATIN [Concomitant]

REACTIONS (1)
  - Pain [Unknown]
